FAERS Safety Report 16463184 (Version 1)
Quarter: 2019Q2

REPORT INFORMATION
  Report Type: Spontaneous
  Country: US (occurrence: US)
  Receive Date: 20190621
  Receipt Date: 20190621
  Transmission Date: 20190711
  Serious: No
  Sender: FDA-Public Use
  Company Number: US-PFIZER INC-2016293579

PATIENT
  Age: 67 Year
  Sex: Female

DRUGS (13)
  1. LYRICA [Suspect]
     Active Substance: PREGABALIN
     Dosage: 150 MG, 2X/DAY
     Route: 048
  2. LYRICA [Suspect]
     Active Substance: PREGABALIN
     Dosage: 200 MG, DAILY
     Route: 048
  3. TRAZODONE HYDROCHLORIDE. [Concomitant]
     Active Substance: TRAZODONE HYDROCHLORIDE
     Dosage: 50 MG, DAILY, [DAILY AT BEDTIME]
     Dates: start: 20160526
  4. EXCEDRIN EXTRA STRENGTH [Concomitant]
     Active Substance: ACETAMINOPHEN\ASPIRIN\CAFFEINE
     Dosage: UNK UNK, 2X/DAY, [(250-250-65MG TABLET, 2 ORAL DAILY)]
     Route: 048
  5. LYRICA [Suspect]
     Active Substance: PREGABALIN
     Indication: FIBROMYALGIA
     Dosage: 150 MG, DAILY
     Route: 048
     Dates: start: 20160526
  6. IMITREX [Concomitant]
     Active Substance: SUMATRIPTAN SUCCINATE
     Indication: HEADACHE
     Dosage: 100 MG, UNK, [1 (ONE) TABLET TABLET 1 WITH HEADACHE, MAY REPEAT IN 4 HOURS-NO MORE THAN 2 IN A 24 HO
     Dates: start: 20160526
  7. ALEVE [Concomitant]
     Active Substance: NAPROXEN SODIUM
     Dosage: 220 MG, DAILY
     Route: 048
  8. EFFEXOR [Concomitant]
     Active Substance: VENLAFAXINE HYDROCHLORIDE
     Dosage: 37.5 MG, UNK,  [QHS-EVERY BEDTIME]
     Route: 048
     Dates: start: 20160526
  9. VOLTAREN EX GEL [Concomitant]
     Dosage: UNK UNK, AS NEEDED, [Q6HR [EVERY 6 HOUR], AS NEEDED]
     Dates: start: 20150302
  10. ZYRTEC [Concomitant]
     Active Substance: CETIRIZINE HYDROCHLORIDE
     Dosage: 10 MG, 1X/DAY
     Dates: start: 20150923
  11. TOPIRAMATE. [Concomitant]
     Active Substance: TOPIRAMATE
     Dosage: 50 MG, DAILY
     Dates: start: 20160526
  12. BUPROPION HCL ER [Concomitant]
     Active Substance: BUPROPION HYDROCHLORIDE
     Dosage: 300 MG, DAILY
     Dates: start: 20160526
  13. NASACORT ALLERGY 24HR [Concomitant]
     Active Substance: TRIAMCINOLONE ACETONIDE
     Dosage: 55 UG, AS NEEDED, [55MCG/ACT AEROSOL, NASAL AS NEEDED]
     Route: 045

REACTIONS (4)
  - Off label use [Unknown]
  - Product use issue [Unknown]
  - Pain [Unknown]
  - Gait disturbance [Unknown]
